FAERS Safety Report 8488923 (Version 2)
Quarter: 2013Q1

REPORT INFORMATION
  Report Type: Report from Study
  Country: US (occurrence: US)
  Receive Date: 20120402
  Receipt Date: 20130304
  Transmission Date: 20140127
  Serious: No
  Sender: FDA-Public Use
  Company Number: US-ABBOTT-12P-163-0892713-00

PATIENT
  Sex: Male
  Weight: 88.08 kg

DRUGS (13)
  1. ANDROGEL 1% [Suspect]
     Indication: BLOOD TESTOSTERONE DECREASED
     Dosage: 4 PUMPS A DAY
     Dates: start: 2012
  2. CRESTOR [Concomitant]
     Indication: BLOOD CHOLESTEROL INCREASED
  3. DOXYCYCLINE [Concomitant]
     Indication: ROSACEA
  4. HYZAAR [Concomitant]
     Indication: HYPERTENSION
  5. ASACOL [Concomitant]
     Indication: DIARRHOEA
  6. ALPRAZOLAM [Concomitant]
     Indication: SLEEP DISORDER
  7. FUROSEMIDE [Concomitant]
     Indication: DIURETIC THERAPY
  8. FENTANYL [Concomitant]
     Indication: PAIN
     Dosage: PATCH
  9. ASPIRIN [Concomitant]
     Indication: PRODUCT USED FOR UNKNOWN INDICATION
  10. MULTIVITAMINS [Concomitant]
     Indication: PRODUCT USED FOR UNKNOWN INDICATION
  11. VITAMIN C [Concomitant]
     Indication: PRODUCT USED FOR UNKNOWN INDICATION
  12. VITAMIN D3 [Concomitant]
     Indication: PRODUCT USED FOR UNKNOWN INDICATION
  13. CYCLOBENZAPRINE [Concomitant]
     Indication: BACK PAIN

REACTIONS (1)
  - Testicular atrophy [Not Recovered/Not Resolved]
